FAERS Safety Report 13514815 (Version 5)
Quarter: 2017Q2

REPORT INFORMATION
  Report Type: Report from Study
  Country: UG (occurrence: UG)
  Receive Date: 20170504
  Receipt Date: 20170608
  Transmission Date: 20170830
  Serious: Yes (Hospitalization, Other)
  Sender: FDA-Public Use
  Company Number: UG-VIIV HEALTHCARE LIMITED-UG2017GSK062752

PATIENT
  Age: 28 Year
  Sex: Female

DRUGS (9)
  1. CEFTRIAXONE. [Concomitant]
     Active Substance: CEFTRIAXONE
     Dosage: 1 G, UNK
     Route: 042
  2. METOCLOPRAMIDE INTRAVENOUS [Concomitant]
     Dosage: 10 MG, TID
     Route: 042
  3. BROMOCRIPTINE [Concomitant]
     Active Substance: BROMOCRIPTINE
     Dosage: 2.5 MG, 1D
  4. DOLUTEGRAVIR [Suspect]
     Active Substance: DOLUTEGRAVIR
     Indication: HIV INFECTION
     Dosage: 50 MG, 1D
     Route: 048
     Dates: start: 20170314, end: 20170512
  5. METOCLOPRAMIDE. [Concomitant]
     Active Substance: METOCLOPRAMIDE
     Indication: VOMITING
     Dosage: 10 MG, 1D
  6. CEFTRIAXONE. [Concomitant]
     Active Substance: CEFTRIAXONE
     Dosage: 2 G, SINGLE
     Route: 042
  7. LAMIVUDINE + TENOFOVIR [Concomitant]
     Active Substance: LAMIVUDINE\TENOFOVIR
  8. ARTESUNATE [Concomitant]
     Active Substance: ARTESUNATE
     Dosage: 120 MG, UNK
     Route: 042
  9. ORAL REHYDRATION SALT [Concomitant]
     Indication: VOMITING

REACTIONS (11)
  - Drug-induced liver injury [Recovered/Resolved]
  - Pyrexia [Not Recovered/Not Resolved]
  - Stillbirth [Unknown]
  - Chills [Not Recovered/Not Resolved]
  - Vomiting [Not Recovered/Not Resolved]
  - Hepatitis [Not Recovered/Not Resolved]
  - Dizziness [Not Recovered/Not Resolved]
  - Cough [Not Recovered/Not Resolved]
  - Malaria [Not Recovered/Not Resolved]
  - Upper respiratory tract infection [Not Recovered/Not Resolved]
  - Urinary tract infection [Not Recovered/Not Resolved]

NARRATIVE: CASE EVENT DATE: 20170309
